FAERS Safety Report 21340730 (Version 2)
Quarter: 2022Q4

REPORT INFORMATION
  Report Type: Spontaneous
  Country: DE (occurrence: US)
  Receive Date: 20220916
  Receipt Date: 20221108
  Transmission Date: 20230113
  Serious: Yes (Life-Threatening, Hospitalization, Other)
  Sender: FDA-Public Use
  Company Number: None

PATIENT
  Age: 62 Year
  Sex: Male

DRUGS (65)
  1. OMEPRAZOLE [Suspect]
     Active Substance: OMEPRAZOLE
     Indication: Prophylaxis
     Dosage: DRUG NAME: GASTRACID. DOSAGE REGIMEN: 0-0-1.
     Dates: start: 20050718
  2. OMEPRAZOLE [Suspect]
     Active Substance: OMEPRAZOLE
     Indication: Prophylaxis against gastrointestinal ulcer
     Dates: start: 20050719
  3. TERBINAFINE [Suspect]
     Active Substance: TERBINAFINE
     Indication: Onychomycosis
     Dates: start: 202207
  4. FORADIL [Suspect]
     Active Substance: FORMOTEROL FUMARATE
     Indication: Chronic obstructive pulmonary disease
     Dosage: DAILY DOSE: 2 DF DOSAGE FORM EVERY DAY
     Dates: start: 20050629, end: 20050718
  5. FORADIL [Suspect]
     Active Substance: FORMOTEROL FUMARATE
     Dosage: 2 DF, QD
  6. THEOPHYLLINE ANHYDROUS [Suspect]
     Active Substance: THEOPHYLLINE ANHYDROUS
     Indication: Chronic obstructive pulmonary disease
     Dosage: ROUTE: INTRAVENOUS. DOSAGE REGIMEN: 3-0-0, 1-0-0
     Route: 042
     Dates: start: 20050627, end: 20050630
  7. THEOPHYLLINE ANHYDROUS [Suspect]
     Active Substance: THEOPHYLLINE ANHYDROUS
     Indication: Chronic obstructive pulmonary disease
     Dosage: ROUTE: INTRAVENOUS
     Dates: start: 20050718, end: 20050718
  8. THEOPHYLLINE ANHYDROUS [Suspect]
     Active Substance: THEOPHYLLINE ANHYDROUS
     Indication: Chronic obstructive pulmonary disease
     Dosage: ROUTE: ORAL, DOSAGE REGIMEN:1-0-0
     Dates: start: 20050704, end: 20050709
  9. THEOPHYLLINE ANHYDROUS [Suspect]
     Active Substance: THEOPHYLLINE ANHYDROUS
     Indication: Chronic obstructive pulmonary disease
     Dosage: ROUTE: INTRAVENOUS
     Route: 042
     Dates: start: 20050721, end: 20050721
  10. CLONIDINE [Suspect]
     Active Substance: CLONIDINE
     Indication: Alcohol withdrawal syndrome
     Dosage: 1.5 MG, QD
     Dates: start: 20050703, end: 20050704
  11. CLONIDINE [Suspect]
     Active Substance: CLONIDINE
     Indication: Alcohol withdrawal syndrome
     Dosage: DOSAGE REGIMEN: 1-0-0
     Dates: start: 20050628, end: 20050630
  12. MOXIFLOXACIN HYDROCHLORIDE [Suspect]
     Active Substance: MOXIFLOXACIN HYDROCHLORIDE
     Indication: Infective exacerbation of chronic obstructive airways disease
     Dosage: DOSAGE REGIMEN: 1-0-0,400 MG, QD
     Dates: start: 20050627, end: 20050703
  13. CLOMETHIAZOLE [Suspect]
     Active Substance: CLOMETHIAZOLE
     Indication: Alcohol withdrawal syndrome
     Dosage: DOSAGE REGIMEN: 2-2-2,2 DF, TID
     Dates: start: 20050630, end: 20050703
  14. HEPARIN SODIUM [Suspect]
     Active Substance: HEPARIN SODIUM
     Indication: Thrombosis prophylaxis
     Dosage: DOSAGE REGIMEN: 1-0-0
     Dates: start: 20050627, end: 20050709
  15. CLORAZEPATE DIPOTASSIUM [Suspect]
     Active Substance: CLORAZEPATE DIPOTASSIUM
     Indication: Sedation
     Dosage: 10 MG, HS
  16. CLORAZEPATE DIPOTASSIUM [Suspect]
     Active Substance: CLORAZEPATE DIPOTASSIUM
     Indication: Sedation
     Dosage: DOSAGE REGIMEN: 1-1-1-2
     Dates: start: 20050627, end: 20050702
  17. CLORAZEPATE DIPOTASSIUM [Suspect]
     Active Substance: CLORAZEPATE DIPOTASSIUM
     Dosage: 10 MG, QD
     Dates: start: 20050705, end: 20050705
  18. BEROTEC [Suspect]
     Active Substance: FENOTEROL HYDROBROMIDE
     Indication: Chronic obstructive pulmonary disease
     Dosage: DOSAGE REGIMEN: 2-3X/WO
     Dates: start: 20040601
  19. BEROTEC [Suspect]
     Active Substance: FENOTEROL HYDROBROMIDE
     Dosage: UNK, TIW
  20. PANTOZOL [Suspect]
     Active Substance: PANTOPRAZOLE SODIUM
     Indication: Prophylaxis
     Dosage: DAILY DOSE: 40 MG MILLIGRAM(S) EVERY DAY
     Dates: start: 20050703, end: 20050718
  21. PANTOZOL [Suspect]
     Active Substance: PANTOPRAZOLE SODIUM
     Indication: Prophylaxis against gastrointestinal ulcer
     Dosage: DAILY DOSE: 40 MG MILLIGRAM(S) EVERY DAY
     Dates: start: 20050629, end: 20050630
  22. NITROGLYCERIN [Suspect]
     Active Substance: NITROGLYCERIN
     Indication: Hypertension
     Dosage: DOSAGE REGIMEN: 0-0
     Dates: start: 20050702, end: 20050702
  23. CALCIUM [Suspect]
     Active Substance: CALCIUM
     Indication: Osteoporosis
     Dosage: DOSAGE REGIMEN: 1-0-1. DRUG NAME: CA-MINERALIEN.
     Dates: start: 20050715, end: 20050718
  24. DIGITOXIN [Suspect]
     Active Substance: DIGITOXIN
     Indication: Coronary artery disease
     Dosage: DAILY DOSE: 0.1 MG MILLIGRAM(S) EVERY DAY
     Dates: start: 20050708
  25. AMBROXOL [Suspect]
     Active Substance: AMBROXOL
     Indication: Unevaluable event
     Dosage: DAILY DOSE: 28 GTT DROP(S) EVERY DAY
     Dates: start: 20050701, end: 20050718
  26. OMEPRAZOLE [Suspect]
     Active Substance: OMEPRAZOLE
     Indication: Prophylaxis
     Dosage: 0-0-1
     Dates: start: 20050719
  27. PREDNISOLONE [Suspect]
     Active Substance: PREDNISOLONE
     Indication: Chronic obstructive pulmonary disease
     Dosage: DOSAGE REGIMEN: 50 MG 0-0, 280 MG-0-0, 20 MG-0-0, 5 MG 1-2-3.
     Dates: start: 20050630, end: 20050705
  28. PREDNISOLONE [Suspect]
     Active Substance: PREDNISOLONE
     Indication: Chronic obstructive pulmonary disease
     Dates: start: 20050707, end: 20050715
  29. PREDNISOLONE [Suspect]
     Active Substance: PREDNISOLONE
     Indication: Chronic obstructive pulmonary disease
     Dosage: 5 MG, UNK
     Dates: start: 20050719
  30. FLUTICASONE PROPIONATE\SALMETEROL XINAFOATE [Suspect]
     Active Substance: FLUTICASONE PROPIONATE\SALMETEROL XINAFOATE
     Indication: Chronic obstructive pulmonary disease
  31. FLUTICASONE PROPIONATE\SALMETEROL XINAFOATE [Suspect]
     Active Substance: FLUTICASONE PROPIONATE\SALMETEROL XINAFOATE
     Dosage: DOSAGE REGIMEN: 1-0-1
     Dates: start: 20050718
  32. SPIRIVA [Suspect]
     Active Substance: TIOTROPIUM BROMIDE MONOHYDRATE
     Indication: Chronic obstructive pulmonary disease
     Dosage: 1 DF, QD
  33. SPIRIVA [Suspect]
     Active Substance: TIOTROPIUM BROMIDE MONOHYDRATE
     Dosage: DOSAGE REGIMEN: 1-0-0
     Dates: start: 20040601
  34. PREDNISOLONE [Suspect]
     Active Substance: PREDNISOLONE
     Indication: Chronic obstructive pulmonary disease
     Dosage: 50 MG, QD
  35. PREDNISOLONE [Suspect]
     Active Substance: PREDNISOLONE
     Dates: start: 20050628, end: 20050705
  36. PREDNISOLONE [Suspect]
     Active Substance: PREDNISOLONE
     Dosage: 100 MG, QD
  37. PREDNISOLONE [Suspect]
     Active Substance: PREDNISOLONE
     Dosage: 15 MG, QD
  38. FUROSEMIDE [Suspect]
     Active Substance: FUROSEMIDE
     Indication: Hypertension
     Dosage: DAILY DOSE: 40 MG MILLIGRAM(S) EVERY DAY
     Dates: start: 20050707
  39. CHOLECALCIFEROL [Suspect]
     Active Substance: CHOLECALCIFEROL
     Indication: Osteoporosis
     Dosage: DOSE: 1000 IE. DOSAGE REGIMEN: 1-0-0
     Dates: start: 20050718, end: 20050718
  40. CHOLECALCIFEROL [Suspect]
     Active Substance: CHOLECALCIFEROL
     Indication: Osteoporosis
     Dates: start: 20050717, end: 20050717
  41. INSULIN NOS [Suspect]
     Active Substance: INSULIN NOS
     Indication: Blood glucose
     Dosage: DRUG NAME: ALTINSULIN. INDICATION REPORTED: BLOOD GLUCOSE REGULATION
     Dates: start: 20050703, end: 20050703
  42. BECLOMETHASONE DIPROPIONATE [Suspect]
     Active Substance: BECLOMETHASONE DIPROPIONATE
     Indication: Chronic obstructive pulmonary disease
     Dosage: DAILY DOSE: 2 DF DOSAGE FORM EVERY DAY
     Dates: start: 20050627, end: 20050715
  43. BECLOMETHASONE DIPROPIONATE [Suspect]
     Active Substance: BECLOMETHASONE DIPROPIONATE
     Dosage: 2 DF, QD
  44. HYDROCHLOROTHIAZIDE\RAMIPRIL [Suspect]
     Active Substance: HYDROCHLOROTHIAZIDE\RAMIPRIL
     Indication: Cardiovascular disorder
     Dosage: DAILY DOSE: 1 DF DOSAGE FORM EVERY DAY
     Dates: start: 20050703
  45. HYDROCHLOROTHIAZIDE\RAMIPRIL [Suspect]
     Active Substance: HYDROCHLOROTHIAZIDE\RAMIPRIL
     Indication: Cardiovascular disorder
     Dosage: DOSAGE REGIMEN: 5/25 1-0-0
     Dates: start: 20050703
  46. PREDNISONE [Suspect]
     Active Substance: PREDNISONE
     Indication: Product used for unknown indication
     Dosage: 100 MG, QD
  47. NORVASC [Suspect]
     Active Substance: AMLODIPINE BESYLATE
     Indication: Cardiovascular disorder
     Dosage: DOSAGE REGIMEN: 1-0-0
     Dates: start: 20050704, end: 20050709
  48. OXAZEPAM [Suspect]
     Active Substance: OXAZEPAM
     Indication: Sedation
     Dosage: NOT STATED
     Dates: start: 20050708, end: 20050708
  49. BRICANYL [Suspect]
     Active Substance: TERBUTALINE SULFATE
     Indication: Dyspnoea
     Dosage: DOSAGE REGIMEN: 1/2-0-1/2
     Dates: start: 20050627, end: 20050709
  50. CALCIUM CARBONATE\CHOLECALCIFEROL [Suspect]
     Active Substance: CALCIUM CARBONATE\CHOLECALCIFEROL
     Indication: Osteoporosis
     Dosage: DOSAGE REGIMEN: 1-0-1
     Dates: start: 20050718
  51. CALCIUM CARBONATE\CHOLECALCIFEROL [Suspect]
     Active Substance: CALCIUM CARBONATE\CHOLECALCIFEROL
     Dates: start: 20050719
  52. PHENPROCOUMON [Suspect]
     Active Substance: PHENPROCOUMON
     Indication: Atrial fibrillation
     Dates: start: 20050710
  53. CITRIC ACID MONOHYDRATE\POTASSIUM BICARBONATE\POTASSIUM CITRATE [Suspect]
     Active Substance: CITRIC ACID MONOHYDRATE\POTASSIUM BICARBONATE\POTASSIUM CITRATE
     Indication: Hypokalaemia
     Dosage: DOSAGE REGIMEN: 1-0-0
     Dates: start: 20050704, end: 20050713
  54. MARCUMAR [Suspect]
     Active Substance: PHENPROCOUMON
     Indication: Atrial fibrillation
     Dosage: ACCORDING INR
     Dates: start: 20050710
  55. VERAPAMIL HYDROCHLORIDE [Suspect]
     Active Substance: VERAPAMIL HYDROCHLORIDE
     Indication: Atrial fibrillation
     Dosage: DOSAGE REGIMEN: 1-0-0-0, 1-1-0-1
     Dates: start: 20050718
  56. PREDNISOLONE [Suspect]
     Active Substance: PREDNISOLONE
     Indication: Chronic obstructive pulmonary disease
     Dates: start: 20050721, end: 20050721
  57. ISOPTIN [Suspect]
     Active Substance: VERAPAMIL HYDROCHLORIDE
     Indication: Atrial fibrillation
     Dosage: DOSAGE REGIMEN: 0-0-0-1, 1-1-0-0
     Dates: start: 20050709
  58. ACETYLCYSTEINE [Suspect]
     Active Substance: ACETYLCYSTEINE
     Indication: Productive cough
     Dosage: DAILY DOSE: 600 MG MILLIGRAM(S) EVERY DAY
     Dates: start: 20050629, end: 20050712
  59. HALOPERIDOL [Concomitant]
     Active Substance: HALOPERIDOL
     Indication: Sedation
     Dosage: DRUG NAME: HALOPERIDOL TROPFEN. DOSAGE REGIMEN: 10-0-0
     Dates: start: 20050629, end: 20050630
  60. HALOPERIDOL [Concomitant]
     Active Substance: HALOPERIDOL
     Indication: Sedation
     Dosage: 10 GTT, QD
     Dates: start: 20050703
  61. RINGERLOESUNG [Concomitant]
     Indication: Unevaluable event
     Dosage: DRUG NAME: RINGER LSG. DOSAGE REGIMEN: 1-0-0
     Dates: start: 20050627, end: 20050703
  62. FRUCTOSE\INSULIN BEEF [Concomitant]
     Active Substance: FRUCTOSE\INSULIN BEEF
     Indication: Product used for unknown indication
     Dates: start: 20050703, end: 20050703
  63. DELIX [Concomitant]
     Indication: Cardiovascular disorder
     Dosage: DOSAGE REGIMEN: 1-0-0
     Dates: start: 20050630, end: 20050702
  64. DELIX [Concomitant]
     Dates: start: 20050630, end: 20050702
  65. BUPROPION [Concomitant]
     Active Substance: BUPROPION
     Indication: Depression

REACTIONS (10)
  - Blister [Unknown]
  - Nikolsky^s sign [Unknown]
  - Pyrexia [Unknown]
  - Stevens-Johnson syndrome [Recovered/Resolved]
  - Toxic epidermal necrolysis [Recovered/Resolved]
  - Pruritus [Unknown]
  - Insomnia [Not Recovered/Not Resolved]
  - Nausea [Not Recovered/Not Resolved]
  - Fatigue [Not Recovered/Not Resolved]
  - Abdominal pain [Not Recovered/Not Resolved]

NARRATIVE: CASE EVENT DATE: 20050721
